FAERS Safety Report 6001006-1 (Version None)
Quarter: 2008Q4

REPORT INFORMATION
  Report Type: 
  Country: None (occurrence: None)
  Receive Date: 20081215
  Receipt Date: 20080922
  Transmission Date: 20090506
  Serious: No
  Sender: FDA-Public Use
  Company Number: US-BRISTOL-MYERS SQUIBB COMPANY-14343958

PATIENT
  Age: 57 Year
  Sex: Female

DRUGS (2)
  1. QUESTRAN [Suspect]
  2. ATENOLOL [Suspect]

REACTIONS (1)
  - HYPERSENSITIVITY [None]
